FAERS Safety Report 6478456-2 (Version None)
Quarter: 2009Q4

REPORT INFORMATION
  Report Type: 
  Country: None (occurrence: None)
  Receive Date: 20091202
  Receipt Date: 20091118
  Transmission Date: 20100525
  Serious: Yes (Disabling)
  Sender: FDA-Public Use
  Company Number: GB-DEXPHARM-20091995

PATIENT
  Age: 51 Year
  Sex: Female

DRUGS (3)
  1. CHLORAPREP [Suspect]
     Dosage: DOSE: 2 % PERCENT
     Dates: start: 20070501
  2. HORMONE REPLACEMENT THERAPY [Concomitant]
  3. LEVOTHYROXINE SODIUM [Concomitant]

REACTIONS (2)
  - ASTHMA [None]
  - CONDITION AGGRAVATED [None]
